FAERS Safety Report 5297485-8 (Version None)
Quarter: 2007Q2

REPORT INFORMATION
  Report Type: 
  Country: None (occurrence: None)
  Receive Date: 20070416
  Receipt Date: 20070405
  Transmission Date: 20071010
  Serious: Yes (Disabling)
  Sender: FDA-Public Use
  Company Number: FR-PURDUE-GBR_2007_0002924

PATIENT
  Sex: Female

DRUGS (5)
  1. OXYCONTIN [Suspect]
     Indication: MUSCULOSKELETAL PAIN
     Dosage: 30 MG, BID
     Route: 048
  2. OXYCONTIN [Suspect]
     Dosage: 20 MG, BID
     Route: 048
  3. OXYCONTIN [Suspect]
     Dosage: 10 MG, BID
     Route: 048
  4. OXYNORM [Suspect]
     Indication: MUSCULOSKELETAL PAIN
     Dosage: UNK, PRN
     Route: 048
  5. REMICADE [Concomitant]
     Indication: MUSCULOSKELETAL PAIN
     Dosage: UNK, UNK
     Route: 048

REACTIONS (3)
  - DIZZINESS [None]
  - SCOTOMA [None]
  - VISUAL FIELD DEFECT [None]
